FAERS Safety Report 5971614-2 (Version None)
Quarter: 2008Q4

REPORT INFORMATION
  Report Type: 
  Country: None (occurrence: None)
  Receive Date: 20081201
  Receipt Date: 20081118
  Transmission Date: 20090506
  Serious: Yes (Hospitalization)
  Sender: FDA-Public Use
  Company Number: ES-PURDUE-GBR_2008_0004624

PATIENT
  Age: 50 Year
  Sex: Female

DRUGS (6)
  1. MORPHINE SULFATE [Suspect]
     Indication: CANCER PAIN
     Route: 065
     Dates: start: 20071201, end: 20071201
  2. ZOLEDRONIC ACID [Concomitant]
     Indication: DRUG USE FOR UNKNOWN INDICATION
     Route: 065
  3. VINORELBINE [Concomitant]
     Indication: DRUG USE FOR UNKNOWN INDICATION
     Route: 065
  4. CAPECITABINE [Concomitant]
     Indication: DRUG USE FOR UNKNOWN INDICATION
     Route: 065
  5. GEMCITABINE HCL [Concomitant]
     Indication: DRUG USE FOR UNKNOWN INDICATION
     Route: 065
  6. TAXOTERE 20 [Concomitant]
     Indication: DRUG USE FOR UNKNOWN INDICATION
     Route: 065

REACTIONS (1)
  - JEALOUS DELUSION [None]
